FAERS Safety Report 8461587-5 (Version None)
Quarter: 2012Q2

REPORT INFORMATION
  Report Type: 
  Country: None (occurrence: None)
  Receive Date: 20120625
  Receipt Date: 20120619
  Transmission Date: 20120825
  Serious: Yes (Hospitalization, Other)
  Sender: FDA-Public Use
  Company Number: PHHY2010CA41577

PATIENT
  Sex: Female

DRUGS (4)
  1. SANDOSTATIN [Suspect]
     Indication: GASTRINOMA
     Dosage: 50 UG, UNK
     Route: 058
     Dates: start: 20100610
  2. SANDOSTATIN LAR [Suspect]
     Indication: GASTRINOMA
     Dosage: 20 MG, EVERY 4 WEEKS
     Route: 030
     Dates: start: 20100621
  3. SANDOSTATIN LAR [Suspect]
     Dosage: 20 MG, QMO
     Route: 030
  4. SANDOSTATIN LAR [Suspect]
     Dosage: 20 MG, QMO
     Route: 030

REACTIONS (8)
  - DECREASED APPETITE [None]
  - BLOOD PRESSURE INCREASED [None]
  - POOR QUALITY SLEEP [None]
  - THERMAL BURN [None]
  - MICTURITION DISORDER [None]
  - BLOOD PRESSURE DIFFERENCE OF EXTREMITIES [None]
  - ASTHENIA [None]
  - MALAISE [None]
